FAERS Safety Report 6336577-9 (Version None)
Quarter: 2009Q3

REPORT INFORMATION
  Report Type: 
  Country: None (occurrence: None)
  Receive Date: 20090831
  Receipt Date: 20090831
  Transmission Date: 20100115
  Serious: Yes (Life-Threatening)
  Sender: FDA-Public Use
  Company Number: None

PATIENT
  Age: 52 Year
  Sex: Male
  Weight: 80.2867 kg

DRUGS (1)
  1. AMPHETAMINE SALT TABS 20 MG BARR LABS [Suspect]
     Indication: ATTENTION DEFICIT/HYPERACTIVITY DISORDER
     Dosage: 20MG DAILY PO
     Route: 048
     Dates: start: 20090629, end: 20090723

REACTIONS (3)
  - BLOOD PRESSURE INCREASED [None]
  - PRODUCT MEASURED POTENCY ISSUE [None]
  - PRODUCT QUALITY ISSUE [None]
